FAERS Safety Report 4626268-4 (Version None)
Quarter: 2005Q2

REPORT INFORMATION
  Report Type: 
  Country: None (occurrence: None)
  Receive Date: 20050404
  Receipt Date: 20050301
  Transmission Date: 20051028
  Serious: Yes (Life-Threatening, Hospitalization)
  Sender: FDA-Public Use
  Company Number: JP-ROCHE-397475

PATIENT
  Age: 73 Year
  Sex: Male

DRUGS (6)
  1. TAMIFLU [Suspect]
     Route: 048
     Dates: start: 20050222, end: 20050224
  2. FURTULON [Concomitant]
     Route: 048
     Dates: start: 20030815
  3. CEPHADOL [Concomitant]
     Route: 048
     Dates: start: 20030815
  4. MAGNESIUM OXIDE [Concomitant]
     Dosage: DRUG NAME REPORTED AS ^MAGMITT^
     Route: 048
     Dates: start: 20030815
  5. KOLANTYL [Concomitant]
     Route: 048
     Dates: start: 20031015
  6. MUCODYNE [Concomitant]
     Route: 048
     Dates: start: 20041115

REACTIONS (11)
  - BLOOD PRESSURE INCREASED [None]
  - CONDITION AGGRAVATED [None]
  - COUGH [None]
  - DRUG HYPERSENSITIVITY [None]
  - DYSPNOEA [None]
  - ERYTHEMA [None]
  - HEART RATE INCREASED [None]
  - MALAISE [None]
  - RALES [None]
  - RASH [None]
  - STRIDOR [None]
